FAERS Safety Report 7990197-9 (Version None)
Quarter: 2011Q4

REPORT INFORMATION
  Report Type: 
  Country: None (occurrence: None)
  Receive Date: 20111215
  Receipt Date: 20111206
  Transmission Date: 20120403
  Serious: Yes (Hospitalization)
  Sender: FDA-Public Use
  Company Number: TCI2011A03653

PATIENT
  Age: 67 Year
  Sex: Female

DRUGS (6)
  1. POLLAKISU (OXYBUTYNIN HYDROCHLORIDE) [Concomitant]
  2. FAMOTIDINE [Concomitant]
  3. ROHIPNOL (FLUNITRAZEPAM) [Concomitant]
  4. ALOSENN (ACHILLEA MILLEFOLIUM, SENNA ALEXANDRINA LEAF, SENNA ALEXANDRI [Concomitant]
  5. FLAVOXATE HYDROCHLORIDE [Concomitant]
  6. ROZEREM [Suspect]
     Indication: INSOMNIA
     Dosage: 8 MG (8 MG, 1 IN 1 D) PER ORAL
     Route: 048
     Dates: start: 20110131, end: 20110615

REACTIONS (6)
  - HEPATIC FUNCTION ABNORMAL [None]
  - ASPARTATE AMINOTRANSFERASE INCREASED [None]
  - LYMPHADENOPATHY [None]
  - BILIARY TRACT DISORDER [None]
  - BLOOD ALKALINE PHOSPHATASE INCREASED [None]
  - PRURITUS [None]
